FAERS Safety Report 15822786 (Version 1)
Quarter: 2019Q1

REPORT INFORMATION
  Report Type: Spontaneous
  Country: CA (occurrence: CA)
  Receive Date: 20190114
  Receipt Date: 20190114
  Transmission Date: 20190417
  Serious: Yes (Other)
  Sender: FDA-Public Use
  Company Number: CA-ASTRAZENECA-2019SE06085

PATIENT
  Age: 75 Year
  Sex: Female

DRUGS (2)
  1. FENTANYL. [Concomitant]
     Active Substance: FENTANYL
  2. MOVANTIK [Suspect]
     Active Substance: NALOXEGOL OXALATE
     Indication: CONSTIPATION
     Dosage: 25 MG, 1 EVERY 1 DAY
     Route: 048

REACTIONS (7)
  - Dyspnoea [Recovered/Resolved]
  - Abdominal pain [Recovered/Resolved]
  - Withdrawal syndrome [Recovered/Resolved]
  - Anxiety [Recovered/Resolved]
  - Hyperhidrosis [Recovered/Resolved]
  - Chills [Recovered/Resolved]
  - Rhinorrhoea [Recovered/Resolved]
